FAERS Safety Report 16668226 (Version 1)
Quarter: 2019Q3

REPORT INFORMATION
  Report Type: Spontaneous
  Country: US (occurrence: US)
  Receive Date: 20190619
  Receipt Date: 20190619
  Transmission Date: 20191004
  Serious: Yes (Life-Threatening, Hospitalization, Disabling, Other)
  Sender: FDA-Public Use
  Company Number: None

PATIENT
  Age: 37 Year
  Sex: Male
  Weight: 90.72 kg

DRUGS (6)
  1. LATUDA [Concomitant]
     Active Substance: LURASIDONE HYDROCHLORIDE
  2. ORTHO-BIOTIC [Suspect]
     Active Substance: DIETARY SUPPLEMENT\PROBIOTICS
  3. MYCOSTATIN [Suspect]
     Active Substance: NYSTATIN
     Indication: LYME DISEASE
     Dosage: ?          QUANTITY:4 DF DOSAGE FORM;OTHER FREQUENCY:WITH FOOD;?
     Route: 048
     Dates: start: 20170822
  4. DOXYCYLINE HYCLATE [Suspect]
     Active Substance: DOXYCYCLINE HYCLATE
  5. ALPHA BASE [Suspect]
     Active Substance: DIETARY SUPPLEMENT
  6. NEURONTIN [Suspect]
     Active Substance: GABAPENTIN

REACTIONS (1)
  - Amnesia [None]

NARRATIVE: CASE EVENT DATE: 20170315
